FAERS Safety Report 18010887 (Version 2)
Quarter: 2020Q4

REPORT INFORMATION
  Report Type: Spontaneous
  Country: US (occurrence: US)
  Receive Date: 20200710
  Receipt Date: 20201118
  Transmission Date: 20210113
  Serious: No
  Sender: FDA-Public Use
  Company Number: NVSC2020US195105

PATIENT

DRUGS (1)
  1. PATADAY [Suspect]
     Active Substance: OLOPATADINE HYDROCHLORIDE
     Indication: EYE ALLERGY
     Dosage: BID, (STRENGTH: 0.1%/5ML)
     Route: 065

REACTIONS (3)
  - Product leakage [Unknown]
  - Eyelid irritation [Recovered/Resolved]
  - Skin irritation [Recovered/Resolved]
